FAERS Safety Report 13352636 (Version 3)
Quarter: 2017Q2

REPORT INFORMATION
  Report Type: Spontaneous
  Country: GB (occurrence: GB)
  Receive Date: 20170320
  Receipt Date: 20170404
  Transmission Date: 20170830
  Serious: Yes (Death, Hospitalization, Disabling, Other)
  Sender: FDA-Public Use
  Company Number: GB-PFIZER INC-2017121301

PATIENT
  Age: 69 Year
  Sex: Male
  Weight: 75 kg

DRUGS (6)
  1. SIMVASTATIN. [Concomitant]
     Active Substance: SIMVASTATIN
     Indication: CEREBROVASCULAR ACCIDENT PROPHYLAXIS
     Dosage: 20 MG, 1X/DAY, AT NIGHT
     Route: 065
  2. ELIQUIS [Interacting]
     Active Substance: APIXABAN
     Indication: CEREBROVASCULAR ACCIDENT PROPHYLAXIS
     Dosage: 2.5 MG, UNK
     Route: 065
     Dates: start: 20170204
  3. ELIQUIS [Interacting]
     Active Substance: APIXABAN
     Indication: ISCHAEMIC STROKE
  4. AMLODIPINE [Concomitant]
     Active Substance: AMLODIPINE BESYLATE
     Indication: HYPERTENSION
     Dosage: 5 MG, QD
     Route: 065
  5. AMIODARONE HCL [Suspect]
     Active Substance: AMIODARONE HYDROCHLORIDE
     Indication: TACHYARRHYTHMIA
     Dosage: 200 MG, 1X/DAY
     Route: 048
  6. TAMSULOSIN [Concomitant]
     Active Substance: TAMSULOSIN
     Indication: BENIGN PROSTATIC HYPERPLASIA
     Dosage: 400 MG, QD
     Route: 065

REACTIONS (6)
  - Pneumonia [Fatal]
  - Subdural haematoma [Fatal]
  - Labelled drug-drug interaction medication error [Unknown]
  - Agitation [Unknown]
  - Aspiration [Fatal]
  - Depressed level of consciousness [Unknown]

NARRATIVE: CASE EVENT DATE: 20170210
